FAERS Safety Report 13990364 (Version 1)
Quarter: 2017Q3

REPORT INFORMATION
  Report Type: Spontaneous
  Country: US (occurrence: US)
  Receive Date: 20170920
  Receipt Date: 20170920
  Transmission Date: 20171128
  Serious: No
  Sender: FDA-Public Use
  Company Number: US-GLAXOSMITHKLINE-US2017GSK145150

PATIENT
  Sex: Female

DRUGS (2)
  1. FLUTICASONE NASAL SPRAY [Interacting]
     Active Substance: FLUTICASONE
     Indication: NASAL CONGESTION
     Route: 045
  2. BREO ELLIPTA [Suspect]
     Active Substance: FLUTICASONE FUROATE\VILANTEROL TRIFENATATE
     Indication: ASTHMA
     Dosage: UNK
     Route: 055

REACTIONS (8)
  - Dyspnoea [Unknown]
  - Thirst [Unknown]
  - Nasal congestion [Unknown]
  - Cough [Unknown]
  - Headache [Unknown]
  - Drug interaction [Unknown]
  - Wheezing [Unknown]
  - Anxiety [Unknown]

NARRATIVE: CASE EVENT DATE: 20170918
